FAERS Safety Report 14920696 (Version 1)
Quarter: 2018Q2

REPORT INFORMATION
  Report Type: Spontaneous
  Country: US (occurrence: US)
  Receive Date: 20180521
  Receipt Date: 20180521
  Transmission Date: 20180711
  Serious: No
  Sender: FDA-Public Use
  Company Number: US-STALLERGENES SAS-2048178

PATIENT
  Age: 15 Year
  Sex: Female

DRUGS (5)
  1. TOPIRAMATE. [Concomitant]
     Active Substance: TOPIRAMATE
  2. SUMATRIPTAN. [Concomitant]
     Active Substance: SUMATRIPTAN
  3. IBUPROFEN. [Concomitant]
     Active Substance: IBUPROFEN
  4. ORALAIR [Suspect]
     Active Substance: ANTHOXANTHUM ODORATUM POLLEN\DACTYLIS GLOMERATA POLLEN\LOLIUM PERENNE POLLEN\PHLEUM PRATENSE POLLEN\POA PRATENSIS POLLEN
     Indication: SEASONAL ALLERGY
     Route: 060
     Dates: start: 20170306
  5. QUDEXY XR [Concomitant]
     Active Substance: TOPIRAMATE

REACTIONS (1)
  - Adverse drug reaction [Unknown]
